FAERS Safety Report 5182321-0 (Version None)
Quarter: 2006Q4

REPORT INFORMATION
  Report Type: 
  Country: None (occurrence: None)
  Receive Date: 20061220
  Receipt Date: 20060712
  Transmission Date: 20070319
  Serious: No
  Sender: FDA-Public Use
  Company Number: US-GLAXOSMITHKLINE-A0612912A

PATIENT
  Age: 82 Year
  Sex: Male

DRUGS (1)
  1. COMMIT [Suspect]
     Indication: DRUG WITHDRAWAL MAINTENANCE THERAPY
     Dosage: 4MG SEE DOSAGE TEXT
     Route: 048

REACTIONS (2)
  - INTENTIONAL DRUG MISUSE [None]
  - PHARMACEUTICAL PRODUCT COMPLAINT [None]
